FAERS Safety Report 18000545 (Version 3)
Quarter: 2020Q3

REPORT INFORMATION
  Report Type: Other
  Country: CA (occurrence: CA)
  Receive Date: 20200709
  Receipt Date: 20200930
  Transmission Date: 20201103
  Serious: Yes (Other)
  Sender: FDA-Public Use
  Company Number: CA-ROCHE-2359869

PATIENT
  Age: 48 Year
  Sex: Male

DRUGS (9)
  1. MODAFINIL. [Concomitant]
     Active Substance: MODAFINIL
     Dosage: 1 IN MORNING 2 IN THE NOON
  2. BACLOFEN. [Concomitant]
     Active Substance: BACLOFEN
  3. METHYLPHENIDATE. [Concomitant]
     Active Substance: METHYLPHENIDATE
  4. MYRBETRIQ [Concomitant]
     Active Substance: MIRABEGRON
     Dosage: IN MORNING
  5. CLONAZEPAM. [Concomitant]
     Active Substance: CLONAZEPAM
     Dosage: 0.5 MG IN THE EVENING
  6. OCREVUS [Suspect]
     Active Substance: OCRELIZUMAB
     Indication: RELAPSING-REMITTING MULTIPLE SCLEROSIS
     Dosage: AT DAY 0 AND 14 THEN 600 MG IN 6 MONTHS
     Route: 042
     Dates: start: 20190306
  7. FAMPYRA [Concomitant]
     Active Substance: DALFAMPRIDINE
  8. FLUOXETINE [Concomitant]
     Active Substance: FLUOXETINE HYDROCHLORIDE
     Dosage: 1 IN THE MORNING
  9. PREGABALIN. [Concomitant]
     Active Substance: PREGABALIN
     Dosage: 100 MG MORNING AND NOON 150 MG EVENING

REACTIONS (14)
  - Cyst [Not Recovered/Not Resolved]
  - Gait disturbance [Not Recovered/Not Resolved]
  - Oedema [Recovering/Resolving]
  - Fatigue [Unknown]
  - Muscle spasms [Not Recovered/Not Resolved]
  - Insomnia [Not Recovered/Not Resolved]
  - Arthralgia [Not Recovered/Not Resolved]
  - Balance disorder [Unknown]
  - Fungal skin infection [Unknown]
  - Paraesthesia [Unknown]
  - Musculoskeletal stiffness [Unknown]
  - Pain in extremity [Unknown]
  - Muscle spasms [Recovering/Resolving]
  - Umbilical hernia [Not Recovered/Not Resolved]

NARRATIVE: CASE EVENT DATE: 20190904
